FAERS Safety Report 11130458 (Version 2)
Quarter: 2015Q3

REPORT INFORMATION
  Report Type: Spontaneous
  Country: US (occurrence: US)
  Receive Date: 20150522
  Receipt Date: 20150709
  Transmission Date: 20151125
  Serious: No
  Sender: FDA-Public Use
  Company Number: US-ASTRAZENECA-2015SE44958

PATIENT
  Sex: Female
  Weight: 102.1 kg

DRUGS (1)
  1. SYMBICORT [Suspect]
     Active Substance: BUDESONIDE\FORMOTEROL FUMARATE DIHYDRATE
     Indication: ASTHMA
     Dosage: 160/4.5 MCG 120 INHALATIONS TWO TIMES A DAY (320 UG)
     Route: 055
     Dates: start: 201504

REACTIONS (7)
  - Sinusitis [Unknown]
  - Dyspnoea exertional [Unknown]
  - Underdose [Unknown]
  - Product quality issue [Unknown]
  - Malaise [Unknown]
  - Intentional product misuse [Unknown]
  - Visual impairment [Unknown]
